FAERS Safety Report 6043180-7 (Version None)
Quarter: 2009Q1

REPORT INFORMATION
  Report Type: 
  Country: None (occurrence: None)
  Receive Date: 20090119
  Receipt Date: 20090108
  Transmission Date: 20090719
  Serious: Yes (Other)
  Sender: FDA-Public Use
  Company Number: IE-ROCHE-597769

PATIENT
  Sex: Female
  Weight: 58 kg

DRUGS (1)
  1. MIRCERA [Suspect]
     Dosage: ROUTE REPORTED AS IV
     Route: 042
     Dates: start: 20081023, end: 20081111

REACTIONS (2)
  - BLOOD PRESSURE INCREASED [None]
  - CONTUSION [None]
